FAERS Safety Report 8318541 (Version 2)
Quarter: 2013Q1

REPORT INFORMATION
  Report Type: Spontaneous
  Country: AU (occurrence: AU)
  Receive Date: 20120103
  Receipt Date: 20130308
  Transmission Date: 20140127
  Serious: Yes (Hospitalization)
  Sender: FDA-Public Use
  Company Number: AU-UCBSA-048071

PATIENT
  Age: 18 Year
  Sex: Female
  Weight: 55 kg

DRUGS (7)
  1. VIMPAT [Suspect]
     Indication: EPILEPSY
     Dosage: 100MG MANE; 200 MG NOCTE
     Route: 048
     Dates: start: 20111129
  2. VIMPAT [Interacting]
     Indication: EPILEPSY
     Route: 048
     Dates: end: 20111128
  3. TRILEPTAL [Interacting]
     Indication: EPILEPSY
     Route: 048
  4. TRILEPTAL [Interacting]
     Indication: EPILEPSY
     Dosage: TPTAL DAILY DOSE: 400 MG
     Route: 048
  5. BREVINOR [Concomitant]
     Indication: ACNE
     Route: 048
  6. SPIRONOLACTONE [Concomitant]
     Indication: HIRSUTISM
     Route: 048
  7. ORAL CONTRACEPTIVE [Concomitant]
     Indication: PRECOCIOUS PUBERTY

REACTIONS (5)
  - Partial seizures [Recovered/Resolved with Sequelae]
  - Postictal state [Not Recovered/Not Resolved]
  - Convulsion [Recovered/Resolved with Sequelae]
  - Drug interaction [Unknown]
  - Abdominal pain [Recovered/Resolved]
